FAERS Safety Report 21156320 (Version 1)
Quarter: 2022Q3

REPORT INFORMATION
  Report Type: Report from Study
  Country: IT (occurrence: None)
  Receive Date: 20220801
  Receipt Date: 20220801
  Transmission Date: 20221026
  Serious: Yes (Hospitalization, Other)
  Sender: FDA-Public Use
  Company Number: None

PATIENT
  Age: 54 Year
  Sex: Female

DRUGS (4)
  1. LEVOTHYROXINE SODIUM [Suspect]
     Active Substance: LEVOTHYROXINE SODIUM
     Indication: Drug abuse
     Dosage: THERAPY START: 05 APR 2022, TABLETS 150 MCG, REPORTED INTAKE OF ONE BLISTER PACK
     Route: 048
     Dates: end: 20220405
  2. LITHIUM CARBONATE [Suspect]
     Active Substance: LITHIUM CARBONATE
     Indication: Drug abuse
     Dosage: THERAPY START: 05 APR 2022, 150 MG TABLET, NUMBER OF TABLETS TAKEN NOT KNOWN
     Route: 048
     Dates: end: 20220405
  3. BROMAZEPAM [Suspect]
     Active Substance: BROMAZEPAM
     Indication: Drug abuse
     Dosage: 2.5 MG/ML ORAL DROPS SOLUTION. CONTINUE IN ADDITIONAL DRUG INFORMATION
     Route: 048
     Dates: start: 20220404, end: 20220405
  4. TEGRETOL [Concomitant]
     Active Substance: CARBAMAZEPINE
     Indication: Product used for unknown indication

REACTIONS (4)
  - Aggression [Recovered/Resolved]
  - Psychomotor hyperactivity [Recovered/Resolved]
  - Hyperthyroidism [Recovered/Resolved]
  - Drug abuse [Unknown]

NARRATIVE: CASE EVENT DATE: 20220404
